FAERS Safety Report 9795355 (Version 1)
Quarter: 2014Q1

REPORT INFORMATION
  Report Type: Report from Study
  Country: US (occurrence: US)
  Receive Date: 20140103
  Receipt Date: 20140103
  Transmission Date: 20141002
  Serious: Yes (Death)
  Sender: FDA-Public Use
  Company Number: US-ROCHE-1328974

PATIENT
  Sex: 0

DRUGS (3)
  1. INTERFERON ALFA-2A [Suspect]
     Indication: CHRONIC HEPATITIS B
     Dosage: LONG-TERM REGIMEN: INDUCTION PHASE
     Route: 058
  2. INTERFERON ALFA-2A [Suspect]
     Dosage: FOLLOWED BY
     Route: 058
  3. INTERFERON ALFA-2A [Suspect]
     Dosage: MAINTENANCE PHASE
     Route: 058

REACTIONS (1)
  - Bleeding varicose vein [Fatal]
